FAERS Safety Report 10169788 (Version 1)
Quarter: 2014Q2

REPORT INFORMATION
  Report Type: Other
  Country: IL (occurrence: IL)
  Receive Date: 20140513
  Receipt Date: 20140513
  Transmission Date: 20141212
  Serious: Yes (Disabling)
  Sender: FDA-Public Use
  Company Number: IL-ACTELION-A-CH2014-98642

PATIENT
  Age: 53 Year
  Sex: Male

DRUGS (3)
  1. TRACLEER [Suspect]
     Indication: PULMONARY ARTERIAL HYPERTENSION
     Dosage: UNK
     Route: 048
  2. CAPTOPRIL [Concomitant]
     Dosage: 50 MG, TID
  3. LERCANIDIPINE [Concomitant]
     Dosage: 10 MG, BID

REACTIONS (1)
  - Arthrofibrosis [Unknown]
